FAERS Safety Report 14713432 (Version 1)
Quarter: 2018Q2

REPORT INFORMATION
  Report Type: Spontaneous
  Country: US (occurrence: US)
  Receive Date: 20180404
  Receipt Date: 20180404
  Transmission Date: 20180711
  Serious: No
  Sender: FDA-Public Use
  Company Number: US-CIPLA LTD.-2017US17773

PATIENT

DRUGS (2)
  1. SERTRALINE [Suspect]
     Active Substance: SERTRALINE HYDROCHLORIDE
     Dosage: UNK (MANUFACTURE: CIPLA)
     Route: 065
  2. SERTRALINE [Suspect]
     Active Substance: SERTRALINE HYDROCHLORIDE
     Dosage: UNK (MANUFACTURE: LUPIN)
     Route: 065

REACTIONS (4)
  - Drug ineffective [Unknown]
  - Product substitution issue [Unknown]
  - Nightmare [Unknown]
  - Crying [Unknown]
